FAERS Safety Report 21224990 (Version 1)
Quarter: 2022Q3

REPORT INFORMATION
  Report Type: Spontaneous
  Country: US (occurrence: US)
  Receive Date: 20220817
  Receipt Date: 20220817
  Transmission Date: 20221027
  Serious: No
  Sender: FDA-Public Use
  Company Number: US-OTSUKA-2021_028674

PATIENT
  Age: 57 Year
  Sex: Male

DRUGS (3)
  1. ARIPIPRAZOLE [Suspect]
     Active Substance: ARIPIPRAZOLE
     Indication: Psychotic disorder
     Dosage: 5 MG
     Route: 048
  2. HALOPERIDOL [Concomitant]
     Active Substance: HALOPERIDOL
     Indication: Agitation
     Dosage: 5 MG
     Route: 065
  3. LORAZEPAM [Concomitant]
     Active Substance: LORAZEPAM
     Indication: Agitation
     Dosage: 2 MG
     Route: 065

REACTIONS (1)
  - Product use in unapproved indication [Unknown]
